FAERS Safety Report 16343520 (Version 1)
Quarter: 2019Q2

REPORT INFORMATION
  Report Type: Spontaneous
  Country: CN (occurrence: CN)
  Receive Date: 20190522
  Receipt Date: 20190522
  Transmission Date: 20190711
  Serious: Yes (Other)
  Sender: FDA-Public Use
  Company Number: CN-BAXTER-2019BAX010064

PATIENT
  Age: 2 Year
  Sex: Female
  Weight: 13 kg

DRUGS (20)
  1. 0.9% SODIUM CHLORIDE INJECTION [Suspect]
     Active Substance: SODIUM CHLORIDE
     Indication: MEDICATION DILUTION
     Dosage: METHOTREXATE 9 MG + DEXAMETHASONE 1.25 MG + 0.9% SODIUM CHLORIDE 3 ML, DOSAGE FORM: INJECTION
     Route: 037
     Dates: start: 20190329, end: 20190329
  2. 5% GLUCOSE  INJECTION [Suspect]
     Active Substance: DEXTROSE
     Dosage: DOSAGE FORM: INJECTION, CYTARABINE FOR INJECTION + 5 % GLUCOSE INJECTION
     Route: 041
  3. 5% GLUCOSE  INJECTION [Suspect]
     Active Substance: DEXTROSE
     Indication: MEDICATION DILUTION
     Dosage: DOSAGE FORM: INJECTION, CYTARABINE FOR INJECTION 0.024G + 5 % GLUCOSE INJECTION 100ML
     Route: 041
     Dates: start: 20190329, end: 20190404
  4. DEXAMETHASONE SODIUM PHOSPHATE. [Suspect]
     Active Substance: DEXAMETHASONE SODIUM PHOSPHATE
     Dosage: CYTARABINE 0.025G + DEXAMETHASONE SODIUM PHOSPHATE 1.25 MG + 0.9% SODIUM CHLORIDE 3ML
     Route: 037
     Dates: start: 20190329, end: 20190329
  5. CYTARABINE HYDROCHLORIDE [Suspect]
     Active Substance: CYTARABINE HYDROCHLORIDE
     Indication: ACUTE LYMPHOCYTIC LEUKAEMIA
     Dosage: CYTARABINE 0.025G + DEXAMETHASONE 1.25 MG + 0.9% SODIUM CHLORIDE 3ML
     Route: 037
     Dates: start: 20190329, end: 20190329
  6. 0.9% SODIUM CHLORIDE INJECTION [Suspect]
     Active Substance: SODIUM CHLORIDE
     Dosage: DOSAGE FORM: INJECTION, CYTARABINE + DEXAMETHASONE + 0.9 % SODIUM CHLORIDE , DOSE RE-INTRODUCED
     Route: 037
  7. DEXAMETHASONE SODIUM PHOSPHATE. [Suspect]
     Active Substance: DEXAMETHASONE SODIUM PHOSPHATE
     Dosage: CYTARABINE + DEXAMETHASONE SODIUM PHOSPHATE + 0.9% SODIUM CHLORIDE, DOSE RE-INTRODUCED
     Route: 037
  8. 0.9% SODIUM CHLORIDE INJECTION [Suspect]
     Active Substance: SODIUM CHLORIDE
     Dosage: DOSAGE FORM: INJECTION, METHOTREXATE + DEXAMETHASONE + 0.9% SODIUM CHLORIDE, DOSE RE-INTRODUCED
     Route: 037
  9. 0.9% SODIUM CHLORIDE INJECTION [Suspect]
     Active Substance: SODIUM CHLORIDE
     Dosage: DOSAGE FORM: INJECTION, CYTARABINE 0.025G + DEXAMETHASONE 1.25 MG + 0.9% SODIUM CHLORIDE 3 ML
     Route: 037
     Dates: start: 20190329, end: 20190329
  10. 0.9% SODIUM CHLORIDE INJECTION [Suspect]
     Active Substance: SODIUM CHLORIDE
     Dosage: DOSAGE FORM: INJECTION, CYCLOPHOSPHAMIDE + 0.9 % SODIUM CHLORIDE INJECTION, DOSE RE-INTRODUCED
     Route: 041
  11. METHOTREXATE. [Suspect]
     Active Substance: METHOTREXATE
     Indication: ACUTE LYMPHOCYTIC LEUKAEMIA
     Dosage: METHOTREXATE 9 MG + DEXAMETHASONE 1.25 MG + 0.9 % SODIUM CHLORIDE INJECTION 3 ML
     Route: 037
     Dates: start: 20190329, end: 20190329
  12. ENDOXAN [Suspect]
     Active Substance: CYCLOPHOSPHAMIDE
     Indication: ACUTE LYMPHOCYTIC LEUKAEMIA
     Dosage: DOSAGE FORM: INJECTION, CYCLOPHOSPHAMIDE 0.485 G + 0.9 % SODIUM CHLORIDE INJECTION 250 ML
     Route: 041
     Dates: start: 20190329, end: 20190329
  13. DEXAMETHASONE SODIUM PHOSPHATE. [Suspect]
     Active Substance: DEXAMETHASONE SODIUM PHOSPHATE
     Dosage: METHOTREXATE + DEXAMETHASONE SODIUM PHOSPHATE + 0.9% SODIUM CHLORIDE, DOSE RE-INTRODUCED
     Route: 037
  14. METHOTREXATE. [Suspect]
     Active Substance: METHOTREXATE
     Dosage: METHOTREXATE + DEXAMETHASONE + 0.9 % SODIUM CHLORIDE, DOSE RE-INTRODUCED
     Route: 037
  15. CYTARABINE HYDROCHLORIDE [Suspect]
     Active Substance: CYTARABINE HYDROCHLORIDE
     Dosage: CYTARABINE 0.024G + 5% GLUCOSE INJECTION 100ML Q12H
     Route: 041
     Dates: start: 20190329, end: 20190404
  16. ENDOXAN [Suspect]
     Active Substance: CYCLOPHOSPHAMIDE
     Dosage: DOSAGE FORM: INJECTION, CYCLOPHOSPHAMIDE + 0.9 % SODIUM CHLORIDE INJECTION, DOSE RE-INTRODUCED
     Route: 041
  17. 0.9% SODIUM CHLORIDE INJECTION [Suspect]
     Active Substance: SODIUM CHLORIDE
     Dosage: DOSAGE FORM: INJECTION, CYCLOPHOSPHAMIDE 0.485G + 0.9% SODIUM CHLORIDE INJECTION 250 ML
     Route: 041
     Dates: start: 20190329, end: 20190329
  18. DEXAMETHASONE SODIUM PHOSPHATE. [Suspect]
     Active Substance: DEXAMETHASONE SODIUM PHOSPHATE
     Indication: ACUTE LYMPHOCYTIC LEUKAEMIA
     Dosage: METHOTREXATE 9 MG + DEXAMETHASONE SODIUM PHOSPHATE 1.25 MG + 0.9% SODIUM CHLORIDE 3ML
     Route: 037
     Dates: start: 20190329, end: 20190329
  19. CYTARABINE HYDROCHLORIDE [Suspect]
     Active Substance: CYTARABINE HYDROCHLORIDE
     Dosage: CYTARABINE + DEXAMETHASONE + 0.9 % SODIUM CHLORIDE, DOSE RE-INTRODUCED
     Route: 037
  20. CYTARABINE HYDROCHLORIDE [Suspect]
     Active Substance: CYTARABINE HYDROCHLORIDE
     Dosage: CYTARABINE + 5 % GLUCOSE INJECTION, DOSE RE-INTRODUCED
     Route: 041

REACTIONS (1)
  - Bone marrow failure [Recovering/Resolving]

NARRATIVE: CASE EVENT DATE: 20190410
